FAERS Safety Report 19943721 (Version 3)
Quarter: 2021Q4

REPORT INFORMATION
  Report Type: Report from Study
  Country: IE (occurrence: IE)
  Receive Date: 20211011
  Receipt Date: 20211109
  Transmission Date: 20220303
  Serious: Yes (Other)
  Sender: FDA-Public Use
  Company Number: NVSC2021IE230830

PATIENT
  Age: 62 Year
  Sex: Male

DRUGS (3)
  1. VOTRIENT [Suspect]
     Active Substance: PAZOPANIB HYDROCHLORIDE
     Indication: Postoperative delirium
     Dosage: 600 MG
     Route: 048
     Dates: start: 19700101
  2. VOTRIENT [Suspect]
     Active Substance: PAZOPANIB HYDROCHLORIDE
     Indication: Neoplasm malignant
     Dosage: 600 MG
     Route: 065
     Dates: start: 20210928
  3. VOTRIENT [Suspect]
     Active Substance: PAZOPANIB HYDROCHLORIDE
     Dosage: 600 MG
     Route: 065
     Dates: start: 20210930

REACTIONS (5)
  - Hypertension [Unknown]
  - Onychoclasis [Not Recovered/Not Resolved]
  - Skin exfoliation [Unknown]
  - Fatigue [Unknown]
  - Product use in unapproved indication [Unknown]

NARRATIVE: CASE EVENT DATE: 20211005
